FAERS Safety Report 5811530-X (Version None)
Quarter: 2008Q3

REPORT INFORMATION
  Report Type: 
  Country: None (occurrence: None)
  Receive Date: 20080714
  Receipt Date: 20080714
  Transmission Date: 20090109
  Serious: Yes (Hospitalization)
  Sender: FDA-Public Use
  Company Number: None

PATIENT
  Sex: Male
  Weight: 84 kg

DRUGS (3)
  1. CAPECITABINE [Suspect]
     Indication: BILE DUCT CANCER
     Dosage: 2250MG/M2
     Dates: start: 20080613
  2. SORAFENIB [Suspect]
     Indication: BILE DUCT CANCER
     Dosage: 400MG BID
     Dates: start: 20080710
  3. OXALIPLATIN [Suspect]
     Indication: BILE DUCT CANCER
     Dosage: 85MG/M2

REACTIONS (3)
  - HYPOTENSION [None]
  - HYPOXIA [None]
  - PNEUMONIA [None]
